FAERS Safety Report 7736563-8 (Version None)
Quarter: 2011Q3

REPORT INFORMATION
  Report Type: 
  Country: None (occurrence: None)
  Receive Date: 20110902
  Receipt Date: 20110824
  Transmission Date: 20111222
  Serious: Yes (Other)
  Sender: FDA-Public Use
  Company Number: 2011MA012537

PATIENT
  Age: 39 Year
  Sex: Female

DRUGS (3)
  1. PHENYTOIN [Suspect]
     Indication: CONVULSION
  2. BUSULFAN [Suspect]
     Dosage: 1 MG/KG;
  3. CYCLOPHOSPHAMIDE [Suspect]

REACTIONS (2)
  - GRAND MAL CONVULSION [None]
  - NEUROTOXICITY [None]
